FAERS Safety Report 17498425 (Version 1)
Quarter: 2020Q1

REPORT INFORMATION
  Report Type: Spontaneous
  Country: CO (occurrence: CO)
  Receive Date: 20200304
  Receipt Date: 20200304
  Transmission Date: 20200409
  Serious: Yes (Other)
  Sender: FDA-Public Use
  Company Number: CO-009507513-1909COL012985

PATIENT
  Sex: Female

DRUGS (1)
  1. MIRTAZAPINE. [Suspect]
     Active Substance: MIRTAZAPINE
     Dosage: 30 MILLIGRAM, UNKNOWN

REACTIONS (1)
  - Steatorrhoea [Not Recovered/Not Resolved]
